FAERS Safety Report 4783674-5 (Version None)
Quarter: 2005Q3

REPORT INFORMATION
  Report Type: 
  Country: None (occurrence: None)
  Receive Date: 20050928
  Receipt Date: 20050921
  Transmission Date: 20060218
  Serious: Yes (Other)
  Sender: FDA-Public Use
  Company Number: 217950

PATIENT
  Age: 70 Year
  Sex: Male
  Weight: 40 kg

DRUGS (9)
  1. RITUXAN [Suspect]
     Indication: NON-HODGKIN'S LYMPHOMA
     Dosage: 477.261MG, Q3W, INTRAVENOUS
     Route: 042
     Dates: start: 20040915, end: 20050303
  2. CYCLOPHOSPHAMIDE [Concomitant]
  3. DOXORUBICIN HCL [Concomitant]
  4. VINCRISTINE [Concomitant]
  5. PREDNISONE [Concomitant]
  6. POLARAMINE [Concomitant]
  7. HYDROCORTONE (HYDROCORTISONE) [Concomitant]
  8. LEVOFLOXACIN [Concomitant]
  9. FLUCONAZOLE [Concomitant]

REACTIONS (5)
  - HAEMOGLOBIN DECREASED [None]
  - NEUTROPHIL COUNT DECREASED [None]
  - PLATELET COUNT DECREASED [None]
  - PYREXIA [None]
  - WHITE BLOOD CELL COUNT DECREASED [None]
